FAERS Safety Report 7041880-3 (Version None)
Quarter: 2010Q3

REPORT INFORMATION
  Report Type: 
  Country: None (occurrence: None)
  Receive Date: 20100929
  Receipt Date: 20100816
  Transmission Date: 20110219
  Serious: No
  Sender: FDA-Public Use
  Company Number: US-WYE-H16988310

PATIENT
  Sex: Female
  Weight: 45.4 kg

DRUGS (4)
  1. PRISTIQ [Suspect]
     Indication: DEPRESSION
     Dosage: 100 MG 1X PER 1 DAY, 1 DOSE 1X PER 2 DAY, 50 MG 1X PER 1 DAY
     Dates: start: 20100701, end: 20100101
  2. PRISTIQ [Suspect]
     Indication: DEPRESSION
     Dosage: 100 MG 1X PER 1 DAY, 1 DOSE 1X PER 2 DAY, 50 MG 1X PER 1 DAY
     Dates: end: 20100701
  3. PRISTIQ [Suspect]
     Indication: DEPRESSION
     Dosage: 100 MG 1X PER 1 DAY, 1 DOSE 1X PER 2 DAY, 50 MG 1X PER 1 DAY
     Dates: start: 20100101, end: 20100801
  4. PRISTIQ [Suspect]
     Indication: DEPRESSION
     Dosage: 100 MG 1X PER 1 DAY, 1 DOSE 1X PER 2 DAY, 50 MG 1X PER 1 DAY
     Dates: start: 20100801

REACTIONS (9)
  - AGITATION [None]
  - DRUG EFFECT DECREASED [None]
  - DRUG WITHDRAWAL SYNDROME [None]
  - GAIT DISTURBANCE [None]
  - HALLUCINATION [None]
  - HALLUCINATION, AUDITORY [None]
  - INSOMNIA [None]
  - PARAESTHESIA [None]
  - VOMITING [None]
